FAERS Safety Report 14190759 (Version 1)
Quarter: 2017Q4

REPORT INFORMATION
  Report Type: Spontaneous
  Country: JP (occurrence: JP)
  Receive Date: 20171115
  Receipt Date: 20171115
  Transmission Date: 20180321
  Serious: Yes (Hospitalization)
  Sender: FDA-Public Use
  Company Number: JP-GLAXOSMITHKLINE-JP2017JPN165660

PATIENT
  Age: 69 Year
  Sex: Male

DRUGS (7)
  1. AVOLVE [Suspect]
     Active Substance: DUTASTERIDE
     Indication: BENIGN PROSTATIC HYPERPLASIA
     Dosage: 0.5 MG, QD
     Route: 048
     Dates: start: 20170830
  2. AMBROXOL HYDROCHLORIDE [Concomitant]
     Active Substance: AMBROXOL HYDROCHLORIDE
     Dosage: UNK
  3. LANSOPRAZOLE. [Concomitant]
     Active Substance: LANSOPRAZOLE
     Dosage: UNK
  4. CYSTANIN [Concomitant]
     Active Substance: ETHYL CYSTEINATE HYDROCHLORIDE
     Dosage: UNK
  5. CLOTIAZEPAM [Concomitant]
     Active Substance: CLOTIAZEPAM
     Dosage: UNK
  6. URIEF [Concomitant]
     Active Substance: SILODOSIN
     Dosage: UNK
  7. BESACOLIN POWDER [Concomitant]
     Dosage: UNK

REACTIONS (1)
  - Thyroid hormones increased [Unknown]
